FAERS Safety Report 25168064 (Version 1)
Quarter: 2025Q2

REPORT INFORMATION
  Report Type: Spontaneous
  Country: US (occurrence: US)
  Receive Date: 20250407
  Receipt Date: 20250407
  Transmission Date: 20250717
  Serious: No
  Sender: CORCEPT
  Company Number: US-CORCEPT THERAPEUTICS INC.-US-2024CRT001698

PATIENT

DRUGS (1)
  1. KORLYM [Suspect]
     Active Substance: MIFEPRISTONE
     Indication: Cushing^s syndrome
     Dosage: 600 MILLIGRAM, QD
     Route: 048

REACTIONS (2)
  - Tremor [Unknown]
  - Weight decreased [Recovered/Resolved]
